FAERS Safety Report 5068036-8 (Version None)
Quarter: 2006Q3

REPORT INFORMATION
  Report Type: 
  Country: None (occurrence: None)
  Receive Date: 20060731
  Receipt Date: 20060717
  Transmission Date: 20061208
  Serious: Yes (Hospitalization, Other)
  Sender: FDA-Public Use
  Company Number: 2006090593

PATIENT
  Age: 56 Year
  Sex: Female
  Weight: 60.782 kg

DRUGS (2)
  1. CELEBREX [Suspect]
     Indication: ARTHRITIS
     Dosage: 200 MG (100 MG, 2 IN 1 D)
     Dates: start: 19990302
  2. CELEBREX [Suspect]
     Indication: RHEUMATOID ARTHRITIS
     Dosage: 200 MG (100 MG, 2 IN 1 D)
     Dates: start: 19990302

REACTIONS (6)
  - AGEUSIA [None]
  - ANOSMIA [None]
  - ARTHRITIS [None]
  - CARDIAC ARREST [None]
  - INFLAMMATION [None]
  - MYOCARDIAL INFARCTION [None]
